FAERS Safety Report 11209388 (Version 1)
Quarter: 2015Q2

REPORT INFORMATION
  Report Type: Spontaneous
  Country: BR (occurrence: BR)
  Receive Date: 20150622
  Receipt Date: 20150622
  Transmission Date: 20150821
  Serious: Yes (Hospitalization)
  Sender: FDA-Public Use
  Company Number: BR-GLAXOSMITHKLINE-BR2015GSK087079

PATIENT
  Sex: Female
  Weight: 67 kg

DRUGS (2)
  1. SERETIDE [Suspect]
     Active Substance: FLUTICASONE FUROATE\SALMETEROL XINAFOATE
     Indication: ASTHMA
     Dosage: 50/500 MCG, 60 DOSES
     Route: 055
     Dates: end: 20150617
  2. SERETIDE [Suspect]
     Active Substance: FLUTICASONE FUROATE\SALMETEROL XINAFOATE
     Indication: ASTHMA
     Dosage: 1 PUFF(S), BID, 50/250 MCG
     Route: 055
     Dates: start: 20150618

REACTIONS (4)
  - Fatigue [Unknown]
  - Wrong technique in drug usage process [Recovered/Resolved]
  - Asthma [Unknown]
  - Overdose [Recovered/Resolved]
